FAERS Safety Report 6377861-2 (Version None)
Quarter: 2009Q3

REPORT INFORMATION
  Report Type: 
  Country: None (occurrence: None)
  Receive Date: 20090925
  Receipt Date: 20090522
  Transmission Date: 20100115
  Serious: No
  Sender: FDA-Public Use
  Company Number: US-ABBOTT-09P-163-0575574-00

PATIENT
  Sex: Male
  Weight: 87.168 kg

DRUGS (4)
  1. TRICOR [Suspect]
     Indication: BLOOD CHOLESTEROL INCREASED
     Route: 048
     Dates: end: 20090429
  2. DIOVAN [Concomitant]
     Indication: HYPERTENSION
     Route: 048
  3. PAROXETINE HCL [Concomitant]
     Indication: DEPRESSION
     Route: 048
  4. RENAVIT [Concomitant]
     Indication: MEDICAL DIET
     Dosage: UNKNOWN
     Route: 048
     Dates: start: 20090401

REACTIONS (3)
  - BLOOD CREATININE INCREASED [None]
  - BLOOD PARATHYROID HORMONE INCREASED [None]
  - OEDEMA [None]
